FAERS Safety Report 8764873 (Version 2)
Quarter: 2013Q2

REPORT INFORMATION
  Report Type: Spontaneous
  Country: US (occurrence: US)
  Receive Date: 20120901
  Receipt Date: 20130514
  Transmission Date: 20140414
  Serious: No
  Sender: FDA-Public Use
  Company Number: US-009507513-1208USA012381

PATIENT
  Age: 20 Year
  Sex: 0

DRUGS (1)
  1. NUVARING [Suspect]
     Dosage: 3 WEEKS IN 1 WEEK OUT
     Route: 067
     Dates: start: 201008

REACTIONS (1)
  - Metrorrhagia [Unknown]
